FAERS Safety Report 6835364-2 (Version None)
Quarter: 2010Q3

REPORT INFORMATION
  Report Type: 
  Country: None (occurrence: None)
  Receive Date: 20100707
  Receipt Date: 20100622
  Transmission Date: 20110219
  Serious: Yes (Hospitalization, Other)
  Sender: FDA-Public Use
  Company Number: AUR-APL-2010-01680

PATIENT
  Age: 65 Year
  Sex: Female
  Weight: 80.73 kg

DRUGS (2)
  1. METFORMIN HCL [Suspect]
     Indication: DIABETES MELLITUS
     Dosage: 500MG, TID, ORAL
     Route: 048
  2. PF-04383119 [Suspect]
     Indication: OSTEOARTHRITIS

REACTIONS (1)
  - DEEP VEIN THROMBOSIS [None]
